FAERS Safety Report 8313210-8 (Version None)
Quarter: 2012Q2

REPORT INFORMATION
  Report Type: 
  Country: None (occurrence: None)
  Receive Date: 20120424
  Receipt Date: 20120309
  Transmission Date: 20120825
  Serious: Yes (Death, Hospitalization, Other)
  Sender: FDA-Public Use
  Company Number: 217004

PATIENT
  Age: 20 Year
  Sex: Female

DRUGS (1)
  1. INNOHEP [Suspect]
     Indication: DEEP VEIN THROMBOSIS
     Dosage: 0.45 ML THEN CHANGED TO 0.6 (1 IN 1 D)
     Dates: start: 20120224, end: 20120224

REACTIONS (3)
  - CARDIO-RESPIRATORY ARREST [None]
  - UNDERDOSE [None]
  - PULMONARY EMBOLISM [None]
